FAERS Safety Report 8157536-X (Version None)
Quarter: 2012Q1

REPORT INFORMATION
  Report Type: 
  Country: None (occurrence: None)
  Receive Date: 20120222
  Receipt Date: 20120215
  Transmission Date: 20120608
  Serious: Yes (Hospitalization)
  Sender: FDA-Public Use
  Company Number: NL-PFIZER INC-2012038913

PATIENT
  Age: 44 Year
  Sex: Male

DRUGS (1)
  1. SUNITINIB MALATE [Suspect]
     Indication: RENAL CELL CARCINOMA
     Dosage: 1X/DAY
     Route: 048
     Dates: start: 20110714, end: 20120211

REACTIONS (3)
  - MALAISE [None]
  - DIARRHOEA [None]
  - DEHYDRATION [None]
